FAERS Safety Report 8231082-7 (Version None)
Quarter: 2012Q1

REPORT INFORMATION
  Report Type: 
  Country: None (occurrence: None)
  Receive Date: 20120321
  Receipt Date: 20120307
  Transmission Date: 20120608
  Serious: Yes (Death)
  Sender: FDA-Public Use
  Company Number: UTC-015785

PATIENT
  Age: 51 Year
  Sex: Female
  Weight: 81.36 kg

DRUGS (2)
  1. DIURETICS (DIURETICS) [Concomitant]
  2. REMODULIN [Suspect]
     Dosage: INTRAVENOUS
     Route: 042
     Dates: start: 20050601

REACTIONS (2)
  - RIGHT VENTRICULAR FAILURE [None]
  - PNEUMONIA [None]
